FAERS Safety Report 5214051-0 (Version None)
Quarter: 2007Q1

REPORT INFORMATION
  Report Type: 
  Country: None (occurrence: None)
  Receive Date: 20070122
  Receipt Date: 20070115
  Transmission Date: 20070707
  Serious: Yes (Hospitalization)
  Sender: FDA-Public Use
  Company Number: JP-BAYER-200611069BYL

PATIENT
  Age: 75 Year
  Sex: Male
  Weight: 55 kg

DRUGS (13)
  1. AVELOX [Suspect]
     Indication: PNEUMONIA
     Dosage: TOTAL DAILY DOSE: 400 MG  UNIT DOSE: 400 MG
     Route: 048
     Dates: start: 20060915, end: 20060919
  2. FIRSTCIN [Suspect]
     Indication: PNEUMONIA
     Dosage: TOTAL DAILY DOSE: 2 G  UNIT DOSE: 1 G
     Route: 041
     Dates: start: 20060918, end: 20060920
  3. LOXONIN [Suspect]
     Indication: PNEUMONIA
     Route: 048
     Dates: start: 20060911, end: 20060915
  4. AMIKACIN SULFATE [Suspect]
     Indication: PNEUMONIA
     Dosage: TOTAL DAILY DOSE: 400 MG  UNIT DOSE: 100 MG
     Route: 041
     Dates: start: 20060919, end: 20060921
  5. GRAN [Suspect]
     Indication: B-CELL LYMPHOMA
     Dosage: TOTAL DAILY DOSE: 75 ?G  UNIT DOSE: 75 ?G
     Route: 058
     Dates: start: 20060814, end: 20060920
  6. RITUXAN [Suspect]
     Indication: B-CELL LYMPHOMA
     Dosage: TOTAL DAILY DOSE: 600 MG
     Route: 042
     Dates: start: 20060802, end: 20060802
  7. RITUXAN [Suspect]
     Dosage: TOTAL DAILY DOSE: 600 MG
     Route: 042
     Dates: start: 20060904, end: 20060904
  8. TOPOTECIN [Suspect]
     Indication: B-CELL LYMPHOMA
     Dosage: TOTAL DAILY DOSE: 60 MG
     Route: 042
     Dates: start: 20060905, end: 20060907
  9. TOPOTECIN [Suspect]
     Dosage: TOTAL DAILY DOSE: 60 MG
     Route: 042
     Dates: start: 20060803, end: 20060805
  10. ZEFIX [Concomitant]
     Indication: CHRONIC HEPATITIS
     Dosage: TOTAL DAILY DOSE: 100 MG  UNIT DOSE: 100 MG
     Route: 048
     Dates: start: 20051017
  11. WARFARIN SODIUM [Concomitant]
     Indication: DEEP VEIN THROMBOSIS
     Dosage: TOTAL DAILY DOSE: 2 MG  UNIT DOSE: 1 MG
     Route: 048
  12. NITOROL R [Concomitant]
     Indication: ANGINA PECTORIS
     Dosage: TOTAL DAILY DOSE: 40 MG  UNIT DOSE: 20 MG
     Route: 048
  13. ASPIRIN [Concomitant]
     Indication: DEEP VEIN THROMBOSIS
     Dosage: TOTAL DAILY DOSE: 100 MG  UNIT DOSE: 100 MG
     Route: 048

REACTIONS (2)
  - INTERSTITIAL LUNG DISEASE [None]
  - PYREXIA [None]
